FAERS Safety Report 8043747-0 (Version None)
Quarter: 2012Q1

REPORT INFORMATION
  Report Type: 
  Country: None (occurrence: None)
  Receive Date: 20120113
  Receipt Date: 20120104
  Transmission Date: 20120608
  Serious: Yes (Hospitalization)
  Sender: FDA-Public Use
  Company Number: US-BIOGENIDEC-2011BI048601

PATIENT
  Age: 48 Year
  Sex: Female

DRUGS (1)
  1. AVONEX [Suspect]
     Indication: MULTIPLE SCLEROSIS
     Route: 030
     Dates: start: 20111221, end: 20111221

REACTIONS (9)
  - URINARY TRACT INFECTION [None]
  - HEMIPARESIS [None]
  - NEPHROLITHIASIS [None]
  - HYPOTENSION [None]
  - HYPOAESTHESIA [None]
  - PYREXIA [None]
  - KIDNEY INFECTION [None]
  - ASTHENIA [None]
  - PARALYSIS [None]
